FAERS Safety Report 7753482-1 (Version None)
Quarter: 2011Q3

REPORT INFORMATION
  Report Type: 
  Country: None (occurrence: None)
  Receive Date: 20110915
  Receipt Date: 20110812
  Transmission Date: 20111222
  Serious: Yes (Other)
  Sender: FDA-Public Use
  Company Number: PHHY2011JP69243

PATIENT
  Sex: Female

DRUGS (2)
  1. FOLIC ACID [Concomitant]
     Dosage: 400 UG
  2. CARBAMAZEPINE [Suspect]
     Indication: EPILEPSY
     Dosage: 200 MG

REACTIONS (2)
  - ABORTION SPONTANEOUS [None]
  - MATERNAL EXPOSURE DURING PREGNANCY [None]
